FAERS Safety Report 8076652-4 (Version None)
Quarter: 2012Q1

REPORT INFORMATION
  Report Type: 
  Country: None (occurrence: None)
  Receive Date: 20120127
  Receipt Date: 20120119
  Transmission Date: 20120608
  Serious: Yes (Hospitalization, Other)
  Sender: FDA-Public Use
  Company Number: PHHY2012IT005083

PATIENT
  Age: 36 Year
  Sex: Female

DRUGS (4)
  1. METFORMIN HCL [Suspect]
     Indication: WEIGHT DECREASED
     Dosage: 1000 MG, TID
  2. AMILORIDE+HYDROCHLOROTHIAZIDE SANDOZ [Suspect]
     Indication: WEIGHT DECREASED
     Dosage: 1 DF (50 MG AMILORIDE AND 5 MG HYDRO), DAILY
  3. LEVOTHYROXINE SODIUM [Suspect]
     Indication: WEIGHT DECREASED
     Dosage: 100 UG, DAILY
  4. BISACODYL [Suspect]
     Indication: WEIGHT DECREASED

REACTIONS (11)
  - VOMITING [None]
  - HYPONATRAEMIA [None]
  - INTENTIONAL DRUG MISUSE [None]
  - RENAL FAILURE [None]
  - OEDEMA PERIPHERAL [None]
  - ASTHENIA [None]
  - BLOOD PRESSURE DECREASED [None]
  - HYPOKALAEMIA [None]
  - ALOPECIA [None]
  - OLIGURIA [None]
  - LACTIC ACIDOSIS [None]
